FAERS Safety Report 8516286 (Version 3)
Quarter: 2014Q2

REPORT INFORMATION
  Report Type: Spontaneous
  Country: US (occurrence: US)
  Receive Date: 20120417
  Receipt Date: 20140622
  Transmission Date: 20141212
  Serious: No
  Sender: FDA-Public Use
  Company Number: US-ASTRAZENECA-2011SE44923

PATIENT
  Age: 53 Year
  Sex: Female
  Weight: 74.8 kg

DRUGS (6)
  1. NEXIUM [Suspect]
     Indication: GASTROOESOPHAGEAL REFLUX DISEASE
     Route: 048
  2. NEXIUM [Suspect]
     Indication: GASTROOESOPHAGEAL REFLUX DISEASE
     Route: 048
     Dates: start: 1993, end: 20140523
  3. LISINOPRIL HCTZ [Suspect]
     Indication: BLOOD PRESSURE
     Dosage: 20-12.5 MG, DAILY
     Route: 048
     Dates: start: 2013
  4. PROMISEC [Suspect]
     Route: 065
  5. BUSPAR [Concomitant]
     Indication: PANIC ATTACK
  6. WOMENS VITAMIN [Concomitant]
     Indication: VITAMIN SUPPLEMENTATION

REACTIONS (6)
  - Hypertension [Unknown]
  - Gastrooesophageal reflux disease [Unknown]
  - Drug dose omission [Not Recovered/Not Resolved]
  - Drug ineffective [Unknown]
  - Adverse event [Unknown]
  - Intentional product misuse [Unknown]
